FAERS Safety Report 7635154-7 (Version None)
Quarter: 2011Q3

REPORT INFORMATION
  Report Type: 
  Country: None (occurrence: None)
  Receive Date: 20110726
  Receipt Date: 20110715
  Transmission Date: 20111222
  Serious: Yes (Hospitalization, Other)
  Sender: FDA-Public Use
  Company Number: US-BAYER-2010-009356

PATIENT
  Age: 24 Year
  Sex: Female
  Weight: 129.25 kg

DRUGS (8)
  1. DROSPIRENONE AND ETHINYL ESTRADIOL [Suspect]
     Indication: PRODUCT USED FOR UNKNOWN INDICATION
     Dosage: UNK
     Dates: start: 20090401, end: 20090901
  2. LOVENOX [Concomitant]
  3. NEXIUM [Concomitant]
     Dosage: UNK UNK, QD
     Route: 048
  4. MOTRIN [Concomitant]
  5. VOSOL [Concomitant]
  6. ASMANEX TWISTHALER [Concomitant]
  7. EFFEXOR [Concomitant]
     Dosage: 75 MG, HS
  8. XOPENEX [Concomitant]
     Indication: ASTHMA
     Dosage: UNK UNK, PRN

REACTIONS (9)
  - MUSCLE SPASMS [None]
  - PAIN IN EXTREMITY [None]
  - OEDEMA PERIPHERAL [None]
  - PAIN [None]
  - FEAR [None]
  - DEPRESSION [None]
  - DEEP VEIN THROMBOSIS [None]
  - THROMBOSIS [None]
  - ANXIETY [None]
